FAERS Safety Report 5883698-0 (Version None)
Quarter: 2008Q3

REPORT INFORMATION
  Report Type: 
  Country: None (occurrence: None)
  Receive Date: 20080912
  Receipt Date: 20080912
  Transmission Date: 20090109
  Serious: Yes (Other)
  Sender: FDA-Public Use
  Company Number: None

PATIENT
  Age: 16 Year
  Sex: Female
  Weight: 56.6996 kg

DRUGS (1)
  1. BIAXIN [Suspect]
     Indication: GASTROENTERITIS VIRAL
     Dates: start: 19900510, end: 19900510

REACTIONS (5)
  - DIARRHOEA [None]
  - DIZZINESS [None]
  - DYSPNOEA [None]
  - PALPITATIONS [None]
  - VOMITING [None]
